FAERS Safety Report 5875142-4 (Version None)
Quarter: 2008Q3

REPORT INFORMATION
  Report Type: 
  Country: None (occurrence: None)
  Receive Date: 20080909
  Receipt Date: 20080908
  Transmission Date: 20090109
  Serious: Yes (Hospitalization)
  Sender: FDA-Public Use
  Company Number: D0058431A

PATIENT
  Age: 63 Year
  Sex: Female
  Weight: 78 kg

DRUGS (5)
  1. TYVERB [Suspect]
     Indication: NEOPLASM
     Dosage: 750MG PER DAY
     Route: 048
     Dates: start: 20080618, end: 20080805
  2. XELODA [Concomitant]
     Indication: NEOPLASM
     Dosage: 2500MG PER DAY
     Route: 048
     Dates: start: 20080618, end: 20080729
  3. THYRONAJOD [Concomitant]
     Dosage: 50UG PER DAY
     Route: 048
     Dates: start: 20000101
  4. BISOPROLOL FUMARATE [Concomitant]
     Dosage: 10MG PER DAY
     Route: 048
     Dates: start: 19960101
  5. TRIAMTERENE AND HYDROCHLOROTHIAZIDE [Concomitant]
     Dosage: 75MG PER DAY
     Route: 048
     Dates: start: 19960101

REACTIONS (1)
  - PERIPHERAL ARTERIAL OCCLUSIVE DISEASE [None]
